FAERS Safety Report 8865903 (Version 1)
Quarter: 2012Q4

REPORT INFORMATION
  Report Type: Report from Study
  Country: US (occurrence: US)
  Receive Date: 20121025
  Receipt Date: 20121025
  Transmission Date: 20130627
  Serious: No
  Sender: FDA-Public Use
  Company Number: US-ABBOTT-12P-163-0931296-00

PATIENT
  Sex: Female

DRUGS (3)
  1. LUPRON DEPOT 3.75 MG [Suspect]
     Indication: ENDOMETRIOSIS
     Route: 030
     Dates: start: 201202, end: 201204
  2. LUPRON DEPOT 3.75 MG [Suspect]
     Route: 030
     Dates: start: 201202, end: 201204
  3. LUPRON DEPOT [Suspect]
     Indication: ENDOMETRIOSIS
     Route: 050
     Dates: start: 201205, end: 201205

REACTIONS (5)
  - Pyrexia [Unknown]
  - Feeling hot [Unknown]
  - Hyperhidrosis [Unknown]
  - Insomnia [Unknown]
  - Adverse drug reaction [Unknown]
